FAERS Safety Report 5226228-9 (Version None)
Quarter: 2007Q1

REPORT INFORMATION
  Report Type: 
  Country: None (occurrence: None)
  Receive Date: 20070129
  Receipt Date: 20070124
  Transmission Date: 20070707
  Serious: No
  Sender: FDA-Public Use
  Company Number: 2006SP007465

PATIENT
  Age: 78 Year
  Sex: Female
  Weight: 47 kg

DRUGS (2)
  1. VIRAFERONPEG (PEGINTERFERON ALFA-2B) (PEGINTERFERON ALFA-2B) [Suspect]
     Indication: HEPATITIS C
     Dosage: 80 MCG; QW; SC
     Route: 058
     Dates: start: 20061115
  2. REBETOL [Suspect]
     Indication: HEPATITIS C
     Dosage: 800 MG; QD

REACTIONS (1)
  - ECCHYMOSIS [None]
